FAERS Safety Report 6174943-5 (Version None)
Quarter: 2009Q2

REPORT INFORMATION
  Report Type: 
  Country: None (occurrence: None)
  Receive Date: 20090430
  Receipt Date: 20090210
  Transmission Date: 20091009
  Serious: No
  Sender: FDA-Public Use
  Company Number: US-ASTRAZENECA-2008UW22965

PATIENT
  Age: 73 Year
  Sex: Female
  Weight: 63.5 kg

DRUGS (5)
  1. NEXIUM [Suspect]
     Indication: REFLUX OESOPHAGITIS
     Route: 048
  2. XANAX [Concomitant]
  3. ALTACE [Concomitant]
  4. FISH OIL [Concomitant]
  5. CALTRATE [Concomitant]

REACTIONS (4)
  - BLOOD CREATINE PHOSPHOKINASE INCREASED [None]
  - FALLOPIAN TUBE CYST [None]
  - HEPATIC CYST [None]
  - OVARIAN CYST [None]
